FAERS Safety Report 25004544 (Version 2)
Quarter: 2025Q1

REPORT INFORMATION
  Report Type: Spontaneous
  Country: US (occurrence: US)
  Receive Date: 20250224
  Receipt Date: 20250224
  Transmission Date: 20250409
  Serious: No
  Sender: ABBVIE
  Company Number: US-ABBVIE-6143557

PATIENT
  Sex: Female

DRUGS (2)
  1. LATISSE [Suspect]
     Active Substance: BIMATOPROST
     Indication: Product used for unknown indication
     Route: 047
  2. LATISSE [Suspect]
     Active Substance: BIMATOPROST
     Route: 047

REACTIONS (4)
  - Eye discharge [Unknown]
  - Expired product administered [Unknown]
  - Eye pruritus [Unknown]
  - Product lot number issue [Unknown]

NARRATIVE: CASE EVENT DATE: 20241201
